FAERS Safety Report 8411128-3 (Version None)
Quarter: 2012Q2

REPORT INFORMATION
  Report Type: 
  Country: None (occurrence: None)
  Receive Date: 20120605
  Receipt Date: 20120504
  Transmission Date: 20120825
  Serious: No
  Sender: FDA-Public Use
  Company Number: US-AMGEN-USASP2012028437

PATIENT
  Age: 38 Year
  Sex: Male

DRUGS (1)
  1. ENBREL [Suspect]
     Indication: PSORIATIC ARTHROPATHY
     Dosage: 25 MG, QWK
     Dates: start: 20021201, end: 20070101

REACTIONS (6)
  - MENISCUS LESION [None]
  - PSORIASIS [None]
  - SWELLING [None]
  - PSORIATIC ARTHROPATHY [None]
  - JOINT SWELLING [None]
  - FALL [None]
